FAERS Safety Report 10040946 (Version 1)
Quarter: 2014Q1

REPORT INFORMATION
  Report Type: Spontaneous
  Country: US (occurrence: None)
  Receive Date: 20140326
  Receipt Date: 20140326
  Transmission Date: 20141002
  Serious: Yes (Other)
  Sender: FDA-Public Use
  Company Number: None

PATIENT
  Age: 78 Year
  Sex: Female
  Weight: 79.38 kg

DRUGS (17)
  1. OXYCARBAZEPINE 300 MG TABLET COMMON BRANDS TRILEPTAL [Suspect]
     Indication: NEUROPATHY PERIPHERAL
     Dosage: 1/2 TABLET ONCE A DAY AT HS BY MOUTH
     Route: 048
     Dates: start: 20140130
  2. ATENOLOL [Concomitant]
  3. LOSARTAN [Concomitant]
  4. FAMOTIDINE [Concomitant]
  5. OXYCARB [Concomitant]
  6. DOXYCYCLINE [Concomitant]
  7. METRONIDAZOLE [Concomitant]
  8. CARAFATE [Concomitant]
  9. ASA [Concomitant]
  10. FISH OIL [Concomitant]
  11. FLAXSEED OIL [Concomitant]
  12. LORATADINE [Concomitant]
  13. MVI [Concomitant]
  14. GLUCOSAMINE/CHONDROITIN [Concomitant]
  15. NIACIN [Concomitant]
  16. CINNAMON [Concomitant]
  17. HAWTHORN [Concomitant]

REACTIONS (4)
  - Drug effect decreased [None]
  - Neuropathy peripheral [None]
  - Product substitution issue [None]
  - Condition aggravated [None]
